FAERS Safety Report 9291727 (Version 1)
Quarter: 2013Q2

REPORT INFORMATION
  Report Type: Spontaneous
  Country: US (occurrence: US)
  Receive Date: 20130516
  Receipt Date: 20130516
  Transmission Date: 20140414
  Serious: No
  Sender: FDA-Public Use
  Company Number: US-B.I. PHARMACEUTICALS,INC./RIDGEFIELD-2013-BI-13494BP

PATIENT
  Age: 84 Year
  Sex: Male

DRUGS (3)
  1. SPIRIVA [Suspect]
     Indication: CHRONIC OBSTRUCTIVE PULMONARY DISEASE
     Dosage: 18 MCG
     Route: 055
  2. DULERA [Concomitant]
     Route: 055
  3. PROAIR [Concomitant]
     Route: 055

REACTIONS (2)
  - Halo vision [Recovered/Resolved]
  - Incorrect route of drug administration [Recovered/Resolved]
